FAERS Safety Report 25948025 (Version 1)
Quarter: 2025Q4

REPORT INFORMATION
  Report Type: Spontaneous
  Country: CN (occurrence: CN)
  Receive Date: 20251022
  Receipt Date: 20251022
  Transmission Date: 20260117
  Serious: Yes (Life-Threatening, Other)
  Sender: RANBAXY
  Company Number: CN-SUN PHARMACEUTICAL INDUSTRIES LTD-2025R1-532520

PATIENT
  Age: 14 Year
  Sex: Female

DRUGS (2)
  1. METOPROLOL [Suspect]
     Active Substance: METOPROLOL
     Indication: Product used for unknown indication
     Dosage: 35 DOSAGE FORM
     Route: 048
  2. AMLODIPINE [Suspect]
     Active Substance: AMLODIPINE BESYLATE
     Indication: Product used for unknown indication
     Dosage: 100 DOSAGE FORM
     Route: 048

REACTIONS (9)
  - Toxicity to various agents [Unknown]
  - Overdose [Unknown]
  - Acute respiratory distress syndrome [Unknown]
  - Hypoxia [Recovered/Resolved]
  - Shock [Recovered/Resolved]
  - Pulmonary oedema [Recovered/Resolved]
  - Suicide attempt [Unknown]
  - Hypotension [Unknown]
  - Dizziness [Recovered/Resolved]
